FAERS Safety Report 21132484 (Version 1)
Quarter: 2022Q3

REPORT INFORMATION
  Report Type: Spontaneous
  Country: US (occurrence: None)
  Receive Date: 20220726
  Receipt Date: 20220726
  Transmission Date: 20221027
  Serious: Yes (Other)
  Sender: FDA-Public Use
  Company Number: None

PATIENT
  Age: 53 Year
  Weight: 141.52 kg

DRUGS (1)
  1. CITROMA MAGNESIUM CITRATE [Suspect]
     Active Substance: MAGNESIUM CITRATE
     Indication: Constipation
     Dosage: FREQUENCY : AS NEEDED;?
     Route: 048
     Dates: start: 20220707, end: 20220707

REACTIONS (5)
  - Abdominal discomfort [None]
  - Dizziness [None]
  - Chest pain [None]
  - Fatigue [None]
  - Pain [None]

NARRATIVE: CASE EVENT DATE: 20220707
